FAERS Safety Report 5085969-7 (Version None)
Quarter: 2006Q3

REPORT INFORMATION
  Report Type: 
  Country: None (occurrence: None)
  Receive Date: 20060817
  Receipt Date: 20060804
  Transmission Date: 20061208
  Serious: Yes (Other)
  Sender: FDA-Public Use
  Company Number: 225953

PATIENT
  Sex: Male

DRUGS (2)
  1. XOLAIR [Suspect]
     Indication: DRUG USE FOR UNKNOWN INDICATION
     Dosage: 300 MG, 2/WEEK, SUBCUTANEOUS
     Route: 058
     Dates: start: 20060512
  2. METHOTREXATE [Concomitant]

REACTIONS (8)
  - DYSPNOEA [None]
  - FATIGUE [None]
  - HAEMORRHAGE URINARY TRACT [None]
  - PAIN IN EXTREMITY [None]
  - PARAESTHESIA [None]
  - SKIN DISORDER [None]
  - THROAT TIGHTNESS [None]
  - TREMOR [None]
